FAERS Safety Report 20944920 (Version 1)
Quarter: 2022Q2

REPORT INFORMATION
  Report Type: Spontaneous
  Country: US (occurrence: US)
  Receive Date: 20220610
  Receipt Date: 20220610
  Transmission Date: 20220721
  Serious: Yes (Other)
  Sender: FDA-Public Use
  Company Number: US-MYLANLABS-2022M1043187

PATIENT
  Age: 65 Year
  Sex: Female

DRUGS (9)
  1. PREDNISONE [Suspect]
     Active Substance: PREDNISONE
     Indication: Rash
     Dosage: UNK
  2. PREDNISONE [Suspect]
     Active Substance: PREDNISONE
     Indication: Dermatitis allergic
     Dosage: DOSE INCREASED TO 50MG/DAY
  3. PREDNISONE [Suspect]
     Active Substance: PREDNISONE
     Dosage: PREDNISONE DOSE WAS TAPERED TO 5 MG/DAY.
  4. PREDNISONE [Suspect]
     Active Substance: PREDNISONE
     Dosage: 7.5 MILLIGRAM, QD
  5. LORATADINE [Suspect]
     Active Substance: LORATADINE
     Indication: Rash
  6. CETIRIZINE [Suspect]
     Active Substance: CETIRIZINE HYDROCHLORIDE
     Indication: Rash
     Dosage: UNK
  7. MOMETASONE [Suspect]
     Active Substance: MOMETASONE
     Indication: Rash
     Dosage: UNK
     Route: 061
  8. ZOTAROLIMUS [Concomitant]
     Active Substance: ZOTAROLIMUS
     Indication: Coronary artery disease
     Dosage: UNK,TWO ZOTAROLIMUS ELUTING STENTS
  9. MEPOLIZUMAB [Concomitant]
     Active Substance: MEPOLIZUMAB
     Indication: Eosinophilia
     Dosage: 300 MILLIGRAM, MONTHLY
     Route: 058

REACTIONS (2)
  - Rebound effect [Recovered/Resolved]
  - Drug ineffective [Unknown]
